FAERS Safety Report 24284636 (Version 1)
Quarter: 2024Q3

REPORT INFORMATION
  Report Type: Other
  Country: GB (occurrence: GB)
  Receive Date: 20240905
  Receipt Date: 20240905
  Transmission Date: 20241017
  Serious: Yes (Hospitalization, Other)
  Sender: Everest Life Sciences
  Company Number: GB-Everest Life Sciences LLC-2161223

PATIENT
  Age: 80 Year
  Sex: Female

DRUGS (4)
  1. DAPSONE [Suspect]
     Active Substance: DAPSONE
     Indication: Pemphigoid
     Route: 048
  2. PREDNISOLONE [Suspect]
     Active Substance: PREDNISOLONE
     Route: 048
  3. DOXYCYCLINE [Concomitant]
     Active Substance: DOXYCYCLINE\DOXYCYCLINE HYCLATE
     Route: 065
  4. CLOBETASOL PROPIONATE [Concomitant]
     Active Substance: CLOBETASOL PROPIONATE
     Route: 065

REACTIONS (3)
  - Delirium [Unknown]
  - Product use in unapproved indication [Unknown]
  - Methaemoglobinaemia [Unknown]
